FAERS Safety Report 14762860 (Version 1)
Quarter: 2018Q2

REPORT INFORMATION
  Report Type: Spontaneous
  Country: IN (occurrence: IN)
  Receive Date: 20180416
  Receipt Date: 20180416
  Transmission Date: 20180711
  Serious: Yes (Other)
  Sender: FDA-Public Use
  Company Number: IN-TORRENT-00001671

PATIENT
  Sex: Male

DRUGS (1)
  1. TOLAZ LA [Suspect]
     Active Substance: OLANZAPINE
     Indication: PRODUCT USED FOR UNKNOWN INDICATION
     Dosage: GIVEN ONCE ONLY , MANUFACTURING DATE: 05-2017
     Route: 030
     Dates: start: 20180402, end: 20180402

REACTIONS (4)
  - White blood cell count increased [Recovered/Resolved]
  - Agitation [Recovered/Resolved]
  - Sedation [Recovered/Resolved]
  - Pyrexia [Recovered/Resolved]

NARRATIVE: CASE EVENT DATE: 20180402
